FAERS Safety Report 23401766 (Version 3)
Quarter: 2024Q1

REPORT INFORMATION
  Report Type: Spontaneous
  Country: US (occurrence: US)
  Receive Date: 20240115
  Receipt Date: 20240122
  Transmission Date: 20240410
  Serious: No
  Sender: FDA-Public Use
  Company Number: US-OPELLA-2024OHG001062

PATIENT
  Sex: Male

DRUGS (1)
  1. ICY HOT PRO NO-MESS [Suspect]
     Active Substance: CAMPHOR (SYNTHETIC)\MENTHOL
     Indication: Pain
     Dosage: FORMULATION: LIQUID
     Dates: start: 20240108

REACTIONS (2)
  - No adverse event [Unknown]
  - Drug ineffective [Unknown]

NARRATIVE: CASE EVENT DATE: 20240108
